FAERS Safety Report 10166511 (Version 1)
Quarter: 2014Q2

REPORT INFORMATION
  Report Type: Report from Study
  Country: US (occurrence: US)
  Receive Date: 20140512
  Receipt Date: 20140512
  Transmission Date: 20141212
  Serious: Yes (Hospitalization)
  Sender: FDA-Public Use
  Company Number: US-BAYER-2014-068716

PATIENT
  Age: 60 Year
  Sex: Male

DRUGS (3)
  1. SORAFENIB (RAF KINASE INHIBITOR) [Suspect]
     Indication: HEPATIC CANCER METASTATIC
     Dosage: 400 MG, QD
     Route: 048
     Dates: start: 20140313, end: 20140430
  2. SORAFENIB (RAF KINASE INHIBITOR) [Suspect]
     Indication: HEPATIC CANCER METASTATIC
     Dosage: UNK
     Route: 048
     Dates: start: 20140502
  3. DOXORUBICIN [Suspect]
     Indication: HEPATIC CANCER METASTATIC
     Dosage: 60 MG/M2, UNK
     Dates: start: 20140313, end: 20140429

REACTIONS (11)
  - Leukocytosis [Not Recovered/Not Resolved]
  - Hyponatraemia [Recovered/Resolved]
  - Hyperglycaemia [Not Recovered/Not Resolved]
  - Aspartate aminotransferase increased [Recovered/Resolved]
  - Blood alkaline phosphatase increased [Recovered/Resolved]
  - Abdominal pain [Not Recovered/Not Resolved]
  - Dizziness [Not Recovered/Not Resolved]
  - Hypocalcaemia [Not Recovered/Not Resolved]
  - Aspartate aminotransferase increased [Not Recovered/Not Resolved]
  - Blood alkaline phosphatase increased [Not Recovered/Not Resolved]
  - Hypoalbuminaemia [Not Recovered/Not Resolved]
